FAERS Safety Report 20962598 (Version 1)
Quarter: 2022Q2

REPORT INFORMATION
  Report Type: Spontaneous
  Country: FR (occurrence: FR)
  Receive Date: 20220615
  Receipt Date: 20220615
  Transmission Date: 20220720
  Serious: Yes (Other)
  Sender: FDA-Public Use
  Company Number: None

PATIENT
  Age: 59 Year
  Sex: Female
  Weight: 76 kg

DRUGS (3)
  1. CAPECITABINE [Suspect]
     Active Substance: CAPECITABINE
     Indication: Neoplasm malignant
     Dosage: 500MG 3-0-3
     Route: 048
     Dates: start: 20220302, end: 20220413
  2. CAPECITABINE [Suspect]
     Active Substance: CAPECITABINE
     Dosage: 150MG 2-0-2
     Route: 048
     Dates: start: 20220302, end: 20220413
  3. TUCATINIB [Suspect]
     Active Substance: TUCATINIB
     Indication: Neoplasm malignant
     Route: 048
     Dates: start: 20220302, end: 20220413

REACTIONS (1)
  - Hepatic cytolysis [Not Recovered/Not Resolved]

NARRATIVE: CASE EVENT DATE: 20220412
